FAERS Safety Report 4498759-0 (Version None)
Quarter: 2004Q4

REPORT INFORMATION
  Report Type: 
  Country: None (occurrence: None)
  Receive Date: 20041108
  Receipt Date: 20041021
  Transmission Date: 20050328
  Serious: Yes (Death)
  Sender: FDA-Public Use
  Company Number: 205740

PATIENT
  Age: 81 Year
  Sex: Female

DRUGS (2)
  1. AVONEX [Suspect]
     Indication: MULTIPLE SCLEROSIS
     Dosage: 30 MCG QW IM
     Route: 030
     Dates: start: 20020429, end: 20040101
  2. AVONEX [Suspect]
     Indication: MULTIPLE SCLEROSIS
     Dosage: 30 MCG QW IM
     Route: 030
     Dates: start: 20040101, end: 20040923

REACTIONS (4)
  - MALIGNANT MELANOMA [None]
  - NEOPLASM RECURRENCE [None]
  - NEUROENDOCRINE CARCINOMA OF THE SKIN [None]
  - SKIN CANCER METASTATIC [None]
